FAERS Safety Report 7119556-3 (Version None)
Quarter: 2010Q4

REPORT INFORMATION
  Report Type: 
  Country: None (occurrence: None)
  Receive Date: 20101123
  Receipt Date: 20101112
  Transmission Date: 20110411
  Serious: Yes (Other)
  Sender: FDA-Public Use
  Company Number: PHHY2010US75602

PATIENT
  Sex: Female

DRUGS (13)
  1. LESCOL XL [Suspect]
     Route: 048
  2. LOVASTATIN [Suspect]
     Dosage: UNK
  3. PRAVACHOL [Suspect]
     Dosage: UNK
  4. SIMVASTATIN [Suspect]
     Dosage: UNK
  5. CRESTOR [Suspect]
     Dosage: UNK
  6. COLESTIPOL HYDROCHLORIDE [Suspect]
     Dosage: UNK
  7. RED YEAST RICE [Suspect]
     Dosage: UNK
  8. LIPITOR [Suspect]
     Dosage: UNK
  9. DIPYRIDAMOLE [Concomitant]
     Dosage: 50 MG, BID
  10. LEVOXYL [Concomitant]
     Dosage: UNK
  11. VITAMIN D [Concomitant]
     Dosage: UNK
  12. CALCIUM [Concomitant]
     Dosage: UNK
  13. CENTRUM SILVER [Concomitant]
     Dosage: UNK

REACTIONS (8)
  - ABDOMINAL PAIN UPPER [None]
  - BLOOD CHOLESTEROL INCREASED [None]
  - CHEST INJURY [None]
  - CHEST PAIN [None]
  - FEELING ABNORMAL [None]
  - GAIT DISTURBANCE [None]
  - MOVEMENT DISORDER [None]
  - MUSCLE SPASMS [None]
